FAERS Safety Report 25149461 (Version 2)
Quarter: 2025Q2

REPORT INFORMATION
  Report Type: Report from Study
  Country: IN (occurrence: IN)
  Receive Date: 20250402
  Receipt Date: 20250512
  Transmission Date: 20250717
  Serious: Yes (Hospitalization, Other)
  Sender: CIPLA
  Company Number: IN-CIPLA LTD.-2025IN03799

PATIENT

DRUGS (4)
  1. LINAGLIPTIN [Suspect]
     Active Substance: LINAGLIPTIN
     Indication: Product used for unknown indication
     Route: 048
  2. CILDIP [Concomitant]
     Indication: Product used for unknown indication
     Route: 065
  3. BISOBIS [Concomitant]
     Indication: Product used for unknown indication
     Route: 065
  4. ARACHITOL [COLECALCIFEROL] [Concomitant]
     Indication: Product used for unknown indication
     Route: 065

REACTIONS (4)
  - Cerebral thrombosis [Unknown]
  - Paralysis [Recovering/Resolving]
  - Nephrolithiasis [Unknown]
  - Renal disorder [Unknown]

NARRATIVE: CASE EVENT DATE: 20240423
